FAERS Safety Report 5337876-X (Version None)
Quarter: 2007Q2

REPORT INFORMATION
  Report Type: 
  Country: None (occurrence: None)
  Receive Date: 20070309
  Receipt Date: 20060414
  Transmission Date: 20071010
  Serious: Yes (Hospitalization)
  Sender: FDA-Public Use
  Company Number: 07P-163-0357192-00

PATIENT
  Age: 49 Year
  Sex: Female

DRUGS (1)
  1. CYLERT [Suspect]
     Indication: NARCOLEPSY
     Dates: end: 20030101

REACTIONS (1)
  - CONVULSION [None]
